FAERS Safety Report 5066595-2 (Version None)
Quarter: 2006Q3

REPORT INFORMATION
  Report Type: 
  Country: None (occurrence: None)
  Receive Date: 20060713
  Receipt Date: 20060405
  Transmission Date: 20061208
  Serious: Yes (Other)
  Sender: FDA-Public Use
  Company Number: 252258

PATIENT
  Age: 64 Year
  Sex: Female

DRUGS (11)
  1. ACTIVELLA [Suspect]
     Indication: MENOPAUSAL SYMPTOMS
  2. PREMARIN [Suspect]
     Indication: MENOPAUSAL SYMPTOMS
  3. OGEN [Suspect]
     Indication: MENOPAUSAL SYMPTOMS
  4. PROVERA [Suspect]
     Indication: MENOPAUSAL SYMPTOMS
  5. ESTRATEST [Suspect]
     Indication: MENOPAUSAL SYMPTOMS
  6. ESTRACE [Suspect]
     Indication: MENOPAUSAL SYMPTOMS
  7. MEDROXYPROGESTERONE [Suspect]
     Indication: MENOPAUSAL SYMPTOMS
  8. MENEST [Suspect]
     Indication: MENOPAUSAL SYMPTOMS
  9. PREMPRO [Suspect]
     Indication: MENOPAUSAL SYMPTOMS
  10. CLIMARA [Suspect]
     Indication: MENOPAUSAL SYMPTOMS
  11. ESTRATAB [Suspect]
     Indication: MENOPAUSAL SYMPTOMS

REACTIONS (1)
  - BREAST CANCER [None]
